FAERS Safety Report 12926026 (Version 4)
Quarter: 2017Q1

REPORT INFORMATION
  Report Type: Spontaneous
  Country: JP (occurrence: JP)
  Receive Date: 20161109
  Receipt Date: 20170104
  Transmission Date: 20170428
  Serious: No
  Sender: FDA-Public Use
  Company Number: JP-ELI_LILLY_AND_COMPANY-JP201611000083

PATIENT
  Age: 81 Year
  Sex: Male

DRUGS (3)
  1. ZALUTIA [Suspect]
     Active Substance: TADALAFIL
     Indication: PRODUCT USED FOR UNKNOWN INDICATION
     Dosage: 5 MG, QD
     Route: 048
     Dates: start: 20160509, end: 20161010
  2. URIEF [Concomitant]
     Active Substance: SILODOSIN
     Dosage: UNK
     Route: 048
     Dates: end: 20161206
  3. ZALUTIA [Suspect]
     Active Substance: TADALAFIL
     Dosage: 2.5 MG, QD
     Route: 048
     Dates: start: 20161011, end: 20161206

REACTIONS (2)
  - Visual acuity reduced [Unknown]
  - Dizziness [Unknown]

NARRATIVE: CASE EVENT DATE: 201609
